FAERS Safety Report 14225884 (Version 1)
Quarter: 2017Q4

REPORT INFORMATION
  Report Type: Spontaneous
  Country: JP (occurrence: JP)
  Receive Date: 20171127
  Receipt Date: 20171127
  Transmission Date: 20180321
  Serious: Yes (Death)
  Sender: FDA-Public Use
  Company Number: JP-BAYER-2017-190101

PATIENT
  Age: 61 Year
  Sex: Male
  Weight: 41 kg

DRUGS (13)
  1. CODEINE PHOSPHATE [Concomitant]
     Active Substance: CODEINE PHOSPHATE
     Indication: COLORECTAL CANCER RECURRENT
     Dosage: DAILY DOSE 3 G
     Route: 048
  2. SOLANAX [Concomitant]
     Active Substance: ALPRAZOLAM
     Dosage: DAILY DOSE 1.2 MG
     Route: 048
  3. TOCLASE [Concomitant]
     Active Substance: PENTOXYVERINE
     Indication: COLORECTAL CANCER RECURRENT
     Dosage: DAILY DOSE 90 MG
     Route: 048
  4. JUVELA N [Concomitant]
     Active Substance: TOCOPHERYL NICOTINATE, D-.ALPHA.
     Indication: DRUG TOXICITY PROPHYLAXIS
     Dosage: DAILY DOSE 600 MG
     Route: 048
  5. BAYASPIRIN 100 MG [Concomitant]
     Active Substance: ASPIRIN
     Dosage: DAILY DOSE 50 MG
     Route: 048
  6. LASIX [Concomitant]
     Active Substance: FUROSEMIDE
     Dosage: DAILY DOSE 20 MG
     Dates: start: 20171004
  7. STIVARGA [Suspect]
     Active Substance: REGORAFENIB
     Indication: COLORECTAL CANCER RECURRENT
     Dosage: 80 MG, QD, 3-WEEK TREATMENT FOLLOWED BY 1-WEEK REST PERIOD
     Route: 048
     Dates: start: 20171002, end: 20171017
  8. NAIXAN [Concomitant]
     Active Substance: NAPROXEN SODIUM
     Indication: COLORECTAL CANCER RECURRENT
     Dosage: DAILY DOSE 300 MG
     Route: 048
  9. BETAHISTINE MESILATE [Concomitant]
     Active Substance: BETAHISTINE MESILATE
     Dosage: DAILY DOSE 18 MG
     Route: 048
  10. LANSOPRAZOLE. [Concomitant]
     Active Substance: LANSOPRAZOLE
     Dosage: DAILY DOSE 30 MG
     Route: 048
  11. CEPHADOL [Concomitant]
     Active Substance: DIPHENIDOL HYDROCHLORIDE
     Dosage: DAILY DOSE 75 MG
     Route: 048
  12. MAGNESIUM OXIDE. [Concomitant]
     Active Substance: MAGNESIUM OXIDE
     Indication: COLORECTAL CANCER RECURRENT
     Dosage: DAILY DOSE 990 MG
     Route: 048
  13. LASIX [Concomitant]
     Active Substance: FUROSEMIDE
     Dosage: DAILY DOSE 10 MG
     Route: 048

REACTIONS (3)
  - Colorectal cancer recurrent [Fatal]
  - Diplopia [Recovering/Resolving]
  - Dizziness [Recovering/Resolving]

NARRATIVE: CASE EVENT DATE: 20171003
